FAERS Safety Report 12647359 (Version 1)
Quarter: 2016Q3

REPORT INFORMATION
  Report Type: Spontaneous
  Country: JP (occurrence: JP)
  Receive Date: 20160812
  Receipt Date: 20160812
  Transmission Date: 20161109
  Serious: Yes (Hospitalization, Other)
  Sender: FDA-Public Use
  Company Number: JP-ASTELLAS-2014JP001375

PATIENT
  Age: 18 Year
  Sex: Male
  Weight: 46 kg

DRUGS (22)
  1. CYCLOPHOSPHAMIDE. [Concomitant]
     Active Substance: CYCLOPHOSPHAMIDE
     Indication: BONE MARROW CONDITIONING REGIMEN
     Dosage: UNK UNK, UNKNOWN FREQ.
     Route: 065
  2. PROGRAF [Suspect]
     Active Substance: TACROLIMUS\TACROLIMUS ANHYDROUS
     Indication: PROPHYLAXIS AGAINST GRAFT VERSUS HOST DISEASE
     Dosage: 1.68 MG, CONTINUOUS
     Route: 041
     Dates: start: 20140119, end: 2014
  3. METHOTREXATE. [Concomitant]
     Active Substance: METHOTREXATE
     Route: 042
     Dates: start: 20140123, end: 20140123
  4. DANTROLENE [Concomitant]
     Active Substance: DANTROLENE
     Indication: MUSCLE CONTRACTIONS INVOLUNTARY
  5. SOL-MELCORT [Concomitant]
     Active Substance: METHYLPREDNISOLONE SODIUM SUCCINATE
     Indication: PROPHYLAXIS AGAINST GRAFT VERSUS HOST DISEASE
     Route: 042
     Dates: start: 20140120, end: 20140120
  6. FIRSTCIN [Concomitant]
     Active Substance: CEFOZOPRAN HYDROCHLORIDE
     Indication: FEBRILE NEUTROPENIA
     Dosage: UNK UNK, THRICE DAILY
     Route: 042
     Dates: start: 20140114, end: 20140203
  7. FUNGUARD [Concomitant]
     Active Substance: MICAFUNGIN SODIUM
     Indication: ANTIFUNGAL PROPHYLAXIS
     Route: 042
     Dates: start: 20140120, end: 20140211
  8. MORPHINE [Concomitant]
     Active Substance: MORPHINE
     Indication: ANALGESIC THERAPY
     Route: 041
     Dates: start: 20140124, end: 20140130
  9. SHAKUYAKUKANZOTO [Concomitant]
     Active Substance: HERBALS
     Indication: MUSCLE CONTRACTIONS INVOLUNTARY
  10. ETOPOSIDE. [Concomitant]
     Active Substance: ETOPOSIDE
     Indication: BONE MARROW CONDITIONING REGIMEN
     Dosage: UNK UNK, UNKNOWN FREQ.
     Route: 065
  11. OMEPRAL                            /00661202/ [Concomitant]
     Indication: GASTRIC ULCER
     Route: 042
     Dates: start: 20140120, end: 20140211
  12. SHAKUYAKUKANZOTO [Concomitant]
     Active Substance: HERBALS
     Indication: MYALGIA
     Dosage: UNK UNK, UNKNOWN FREQ.
     Route: 065
     Dates: start: 201402
  13. OLMETEC [Concomitant]
     Active Substance: OLMESARTAN MEDOXOMIL
     Indication: PRODUCT USED FOR UNKNOWN INDICATION
     Dosage: UNK UNK, UNKNOWN FREQ.
     Route: 048
     Dates: end: 20140213
  14. DANTROLENE [Concomitant]
     Active Substance: DANTROLENE
     Indication: MYALGIA
     Dosage: UNK UNK, UNKNOWN FREQ.
     Route: 048
     Dates: start: 20140208
  15. ACICLOVIN [Concomitant]
     Active Substance: ACYCLOVIR
     Indication: INFECTION PROPHYLAXIS
     Route: 042
     Dates: start: 20140120, end: 20140208
  16. GRAN [Concomitant]
     Active Substance: FILGRASTIM
     Indication: CYTOPENIA
     Route: 041
     Dates: start: 20140125, end: 20140207
  17. TEICOPLANIN [Concomitant]
     Active Substance: TEICOPLANIN
     Indication: FEBRILE NEUTROPENIA
     Route: 042
     Dates: start: 20140121, end: 20140203
  18. METHOTREXATE. [Concomitant]
     Active Substance: METHOTREXATE
     Indication: PROPHYLAXIS AGAINST GRAFT VERSUS HOST DISEASE
     Route: 042
     Dates: start: 20140121, end: 20140121
  19. PROGRAF [Suspect]
     Active Substance: TACROLIMUS\TACROLIMUS ANHYDROUS
     Dosage: 1.68 MG, CONTINUOUS
     Route: 041
     Dates: start: 2014, end: 20140213
  20. HAPTOGLOBIN [Concomitant]
     Indication: HAEMOLYSIS
     Route: 042
     Dates: start: 20140120, end: 20140120
  21. MEROPENEM. [Concomitant]
     Active Substance: MEROPENEM
     Indication: FEBRILE NEUTROPENIA
     Route: 042
     Dates: start: 20140203, end: 20140213
  22. METHOTREXATE. [Concomitant]
     Active Substance: METHOTREXATE
     Route: 042
     Dates: start: 20140126, end: 20140126

REACTIONS (5)
  - Cytopenia [Recovered/Resolved]
  - Myalgia [Recovering/Resolving]
  - Toxic encephalopathy [Recovered/Resolved]
  - Gastric ulcer [Recovered/Resolved]
  - Muscle contractions involuntary [Recovering/Resolving]

NARRATIVE: CASE EVENT DATE: 20140120
